FAERS Safety Report 25956463 (Version 1)
Quarter: 2025Q4

REPORT INFORMATION
  Report Type: Spontaneous
  Country: TH (occurrence: TH)
  Receive Date: 20251024
  Receipt Date: 20251024
  Transmission Date: 20260118
  Serious: Yes (Other)
  Sender: INCYTE
  Company Number: TH-002147023-NVSC2025TH160812

PATIENT
  Age: 51 Year

DRUGS (1)
  1. RUXOLITINIB [Suspect]
     Active Substance: RUXOLITINIB
     Indication: Primary myelofibrosis
     Dosage: 20 MG, QD
     Route: 065

REACTIONS (8)
  - Leukopenia [Unknown]
  - Burkholderia pseudomallei infection [Unknown]
  - Splenic abscess [Unknown]
  - Anaemia [Unknown]
  - Proctitis [Unknown]
  - Herpes zoster [Unknown]
  - Serum ferritin increased [Unknown]
  - Helicobacter gastritis [Unknown]
